FAERS Safety Report 24920751 (Version 1)
Quarter: 2025Q1

REPORT INFORMATION
  Report Type: Spontaneous
  Country: GB (occurrence: GB)
  Receive Date: 20250204
  Receipt Date: 20250204
  Transmission Date: 20250409
  Serious: Yes (Other)
  Sender: ALKEM
  Company Number: None

PATIENT
  Age: 66 Year
  Sex: Female
  Weight: 54 kg

DRUGS (3)
  1. IBUPROFEN [Suspect]
     Active Substance: IBUPROFEN
     Indication: Adverse drug reaction
     Route: 065
     Dates: start: 20240501
  2. IBUPROFEN [Suspect]
     Active Substance: IBUPROFEN
     Indication: Pain
  3. AMLODIPINE [Concomitant]
     Active Substance: AMLODIPINE BESYLATE
     Indication: Blood pressure measurement
     Route: 065

REACTIONS (2)
  - Lip swelling [Recovered/Resolved]
  - Swelling face [Unknown]

NARRATIVE: CASE EVENT DATE: 20241229
